FAERS Safety Report 10051092 (Version 2)
Quarter: 2014Q2

REPORT INFORMATION
  Report Type: Spontaneous
  Country: US (occurrence: US)
  Receive Date: 20140401
  Receipt Date: 20140401
  Transmission Date: 20141212
  Serious: No
  Sender: FDA-Public Use
  Company Number: US-ASTRAZENECA-2006UW12366

PATIENT
  Age: 88 Year
  Sex: Female
  Weight: 62.6 kg

DRUGS (7)
  1. NEXIUM [Suspect]
     Indication: HIATUS HERNIA
     Route: 048
  2. NEXIUM [Suspect]
     Indication: GASTROOESOPHAGEAL REFLUX DISEASE
     Route: 048
  3. NEXIUM [Suspect]
     Indication: HIATUS HERNIA
     Route: 048
     Dates: start: 2003
  4. NEXIUM [Suspect]
     Indication: GASTROOESOPHAGEAL REFLUX DISEASE
     Route: 048
     Dates: start: 2003
  5. STEROIDS [Suspect]
     Indication: RESPIRATORY TRACT CONGESTION
     Route: 065
  6. VERAPAMIL [Concomitant]
     Indication: ATRIAL FIBRILLATION
  7. LANOXIN [Concomitant]
     Indication: ATRIAL FIBRILLATION

REACTIONS (7)
  - Pneumonia [Recovered/Resolved]
  - Weight decreased [Not Recovered/Not Resolved]
  - Disturbance in attention [Not Recovered/Not Resolved]
  - Stress [Unknown]
  - Respiratory tract congestion [Unknown]
  - Pruritus [Not Recovered/Not Resolved]
  - Alopecia [Unknown]
